FAERS Safety Report 25401091 (Version 1)
Quarter: 2025Q2

REPORT INFORMATION
  Report Type: Spontaneous
  Country: US (occurrence: US)
  Receive Date: 20250605
  Receipt Date: 20250605
  Transmission Date: 20250717
  Serious: No
  Sender: DR REDDYS
  Company Number: US-DRL-USA-USA/2025/05/007666

PATIENT
  Age: 58 Year
  Sex: Female
  Weight: 63.5 kg

DRUGS (1)
  1. NICOTINE [Suspect]
     Active Substance: NICOTINE
     Indication: Ex-tobacco user
     Route: 065

REACTIONS (2)
  - Wrong technique in product usage process [Not Recovered/Not Resolved]
  - Product adhesion issue [Unknown]
